FAERS Safety Report 17878046 (Version 1)
Quarter: 2020Q2

REPORT INFORMATION
  Report Type: Spontaneous
  Country: NL (occurrence: NL)
  Receive Date: 20200610
  Receipt Date: 20200610
  Transmission Date: 20200714
  Serious: Yes (Life-Threatening, Other)
  Sender: FDA-Public Use
  Company Number: NL-AUROBINDO-AUR-APL-2020-027589

PATIENT
  Sex: Male
  Weight: 76 kg

DRUGS (4)
  1. ZOLPIDEM [Suspect]
     Active Substance: ZOLPIDEM TARTRATE
     Indication: INSOMNIA
     Dosage: 40 MILLIGRAM, 1 TOTAL (4 TABLETS ONCE)
     Route: 065
     Dates: start: 20151027, end: 20200525
  2. ENALAPRIL [Concomitant]
     Active Substance: ENALAPRIL
     Indication: PRODUCT USED FOR UNKNOWN INDICATION
     Dosage: 20 MILLIGRAM (TABLET, 20 MG (MILLIGRAM)
     Route: 065
  3. PREGABALIN. [Concomitant]
     Active Substance: PREGABALIN
     Indication: PRODUCT USED FOR UNKNOWN INDICATION
     Dosage: 75 MILLIGRAM (CAPSULE, 75 MG (MILLIGRAM)
     Route: 065
  4. ALLOPURINOL. [Concomitant]
     Active Substance: ALLOPURINOL
     Indication: PRODUCT USED FOR UNKNOWN INDICATION
     Dosage: 300 MILLIGRAM (TABLET, 300 MG (MILLIGRAM)
     Route: 065

REACTIONS (3)
  - Overdose [Recovered/Resolved]
  - Amnesia [Recovered/Resolved]
  - Suicidal ideation [Recovered/Resolved]
